FAERS Safety Report 7413109-5 (Version None)
Quarter: 2011Q2

REPORT INFORMATION
  Report Type: 
  Country: None (occurrence: None)
  Receive Date: 20110413
  Receipt Date: 20110404
  Transmission Date: 20111010
  Serious: Yes (Hospitalization)
  Sender: FDA-Public Use
  Company Number: US-KINGPHARMUSA00001-K201100395

PATIENT
  Sex: Male

DRUGS (1)
  1. EMBEDA [Suspect]
     Dosage: UNK

REACTIONS (1)
  - CEREBROVASCULAR ACCIDENT [None]
